FAERS Safety Report 4622360-9 (Version None)
Quarter: 2005Q1

REPORT INFORMATION
  Report Type: 
  Country: None (occurrence: None)
  Receive Date: 20050328
  Receipt Date: 20050315
  Transmission Date: 20050727
  Serious: Yes (Other)
  Sender: FDA-Public Use
  Company Number: 2005033164

PATIENT
  Age: 34 Year
  Sex: Female
  Weight: 49.6 kg

DRUGS (1)
  1. DOSTINEX [Suspect]
     Indication: HYPERPROLACTINAEMIA
     Dosage: 0.5 MG (0.25 MG, TWICE A WEEK) ORAL
     Route: 048
     Dates: start: 20040210, end: 20040306

REACTIONS (1)
  - DERMATITIS ACNEIFORM [None]
